FAERS Safety Report 10997221 (Version 2)
Quarter: 2015Q2

REPORT INFORMATION
  Report Type: Spontaneous
  Country: US (occurrence: US)
  Receive Date: 20150408
  Receipt Date: 20150408
  Transmission Date: 20150821
  Serious: Yes (Other)
  Sender: FDA-Public Use
  Company Number: US-JNJFOC-20150321199

PATIENT

DRUGS (4)
  1. IBUPROFEN. [Suspect]
     Active Substance: IBUPROFEN
     Indication: RHEUMATOID ARTHRITIS
     Route: 048
  2. IBUPROFEN. [Suspect]
     Active Substance: IBUPROFEN
     Indication: PAIN
     Route: 048
  3. IBUPROFEN. [Suspect]
     Active Substance: IBUPROFEN
     Indication: OSTEOARTHRITIS
     Route: 048
  4. IBUPROFEN. [Suspect]
     Active Substance: IBUPROFEN
     Indication: PRODUCT USED FOR UNKNOWN INDICATION
     Route: 048

REACTIONS (41)
  - Chest pain [Unknown]
  - Gait disturbance [Unknown]
  - Throat irritation [Unknown]
  - Cardiac disorder [Unknown]
  - Hepatobiliary disease [Unknown]
  - Gastroenteritis viral [Unknown]
  - Influenza [Unknown]
  - Viral upper respiratory tract infection [Unknown]
  - Mental disorder [Unknown]
  - Bronchitis [Unknown]
  - Upper respiratory tract infection [Unknown]
  - Type 2 diabetes mellitus [Unknown]
  - Hyperglycaemia [Unknown]
  - Abdominal tenderness [Unknown]
  - Coronary artery disease [Unknown]
  - Abdominal distension [Unknown]
  - Abdominal discomfort [Unknown]
  - Ear infection [Unknown]
  - Fall [Unknown]
  - Hypercholesterolaemia [Unknown]
  - Hyperosmolar state [Unknown]
  - Nerve compression [Unknown]
  - Anxiety [Unknown]
  - Dizziness [Unknown]
  - Oedema peripheral [Unknown]
  - Dyspepsia [Unknown]
  - Diarrhoea [Unknown]
  - Cholelithiasis [Unknown]
  - Gastrointestinal disorder [Unknown]
  - Non-cardiac chest pain [Unknown]
  - Contusion [Unknown]
  - Hyperlipidaemia [Unknown]
  - Knee deformity [Unknown]
  - Dermatitis contact [Unknown]
  - Cataract [Unknown]
  - Vomiting [Unknown]
  - Oesophageal stenosis [Unknown]
  - Laryngitis [Unknown]
  - Rib fracture [Unknown]
  - Dermatitis [Unknown]
  - Product use issue [Unknown]
